FAERS Safety Report 21418799 (Version 1)
Quarter: 2022Q4

REPORT INFORMATION
  Report Type: Spontaneous
  Country: DE (occurrence: DE)
  Receive Date: 20221006
  Receipt Date: 20221006
  Transmission Date: 20230113
  Serious: Yes (Hospitalization)
  Sender: FDA-Public Use
  Company Number: DE-ADRED-08108-01

PATIENT
  Age: 90 Year
  Sex: Female

DRUGS (14)
  1. PREDNISOLONE [Suspect]
     Active Substance: PREDNISOLONE
     Indication: Product used for unknown indication
     Dosage: 5 MILLIGRAM DAILY; 5 MG, 1-0-0-0
  2. MIRTAZAPINE [Concomitant]
     Active Substance: MIRTAZAPINE
     Indication: Product used for unknown indication
     Dosage: .5 DOSAGE FORMS DAILY; 15 MG, 0-0-0.5-0
  3. SPIRIVA [Concomitant]
     Active Substance: TIOTROPIUM BROMIDE MONOHYDRATE
     Indication: Product used for unknown indication
     Dosage: 18 MICROGRAM DAILY; 18 UG, 1-0-0-0
  4. PANTOPRAZOLE SODIUM [Concomitant]
     Active Substance: PANTOPRAZOLE SODIUM
     Indication: Product used for unknown indication
     Dosage: 2 DOSAGE FORMS DAILY; 20 MG, 1-0-1-0
  5. Donepezil AL [Concomitant]
     Indication: Product used for unknown indication
     Dosage: 10 MILLIGRAM DAILY; 10 MG, 0-0-1-0, DONEPEZIL AL 10MG
  6. INSULIN GLARGINE [Concomitant]
     Active Substance: INSULIN GLARGINE
     Indication: Product used for unknown indication
     Dosage: 6 DOSAGE FORMS DAILY; 0-0-6-0
  7. TORSEMIDE [Concomitant]
     Active Substance: TORSEMIDE
     Indication: Product used for unknown indication
     Dosage: 10 MILLIGRAM DAILY; 10 MG, 1-0-0-0
  8. CHOLECALCIFEROL [Concomitant]
     Active Substance: CHOLECALCIFEROL
     Indication: Product used for unknown indication
     Dosage: 1 DOSAGE FORMS DAILY; 1000 IU, 1-0-0-0, DEKRISTOL 1000I.U.
  9. HYDROMORPHONE [Concomitant]
     Active Substance: HYDROMORPHONE
     Indication: Product used for unknown indication
     Dosage: 2 DOSAGE FORMS DAILY; 2 MG, 1-0-1-0
  10. METFORMIN [Concomitant]
     Active Substance: METFORMIN HYDROCHLORIDE
     Indication: Product used for unknown indication
     Dosage: 850 MILLIGRAM DAILY; 850 MG, 0-0-1-0
  11. BISOPROLOL [Concomitant]
     Active Substance: BISOPROLOL
     Indication: Product used for unknown indication
     Dosage: 2 DOSAGE FORMS DAILY; 5 MG, 1-0-1-0
  12. SERTRALINE HYDROCHLORIDE [Concomitant]
     Active Substance: SERTRALINE HYDROCHLORIDE
     Indication: Product used for unknown indication
     Dosage: 125 MILLIGRAM DAILY; 125 MG, 1-0-0-0
  13. MOVICOL [Concomitant]
     Active Substance: POLYETHYLENE GLYCOL 3350\POTASSIUM CHLORIDE\SODIUM BICARBONATE\SODIUM CHLORIDE
     Indication: Product used for unknown indication
     Dosage: 1 DOSAGE FORMS DAILY; 1-0-0-0
  14. IBUPROFEN [Concomitant]
     Active Substance: IBUPROFEN
     Indication: Product used for unknown indication
     Dosage: 2 DOSAGE FORMS DAILY; 400 MG, 1-0-1-0

REACTIONS (4)
  - Abdominal tenderness [Unknown]
  - General physical health deterioration [Unknown]
  - Abdominal pain [Unknown]
  - Dementia [Unknown]
